FAERS Safety Report 5429880-8 (Version None)
Quarter: 2007Q3

REPORT INFORMATION
  Report Type: 
  Country: None (occurrence: None)
  Receive Date: 20070827
  Receipt Date: 20070809
  Transmission Date: 20080115
  Serious: Yes (Hospitalization)
  Sender: FDA-Public Use
  Company Number: 2006RR-01710

PATIENT
  Age: 38 Year
  Sex: Male

DRUGS (6)
  1. CLARITHROMYCIN [Suspect]
     Indication: PNEUMONIA STREPTOCOCCAL
     Dosage: 500 MG, BID, ORAL
     Route: 048
  2. PAROXETINE [Concomitant]
  3. RISPERIDONE [Concomitant]
  4. CLONAZEPAM [Concomitant]
  5. PENICILLIN G (PENICILLIN G) [Concomitant]
  6. GATIFLOXACIN [Concomitant]

REACTIONS (1)
  - DRUG INEFFECTIVE [None]
